FAERS Safety Report 13136269 (Version 2)
Quarter: 2017Q1

REPORT INFORMATION
  Report Type: Report from Study
  Country: None (occurrence: PR)
  Receive Date: 20170121
  Receipt Date: 20170302
  Transmission Date: 20170428
  Serious: Yes (Hospitalization)
  Sender: FDA-Public Use
  Company Number: PR-ABBVIE-17K-131-1839977-00

PATIENT
  Age: 75 Year
  Sex: Male
  Weight: 41.77 kg

DRUGS (1)
  1. HUMIRA [Suspect]
     Active Substance: ADALIMUMAB
     Indication: RHEUMATOID ARTHRITIS
     Route: 058
     Dates: start: 20130102, end: 201701

REACTIONS (10)
  - Cerebrovascular accident [Recovered/Resolved]
  - Asthenia [Unknown]
  - Hypertension [Unknown]
  - Aortic valve disease [Recovering/Resolving]
  - Pleural effusion [Recovered/Resolved]
  - Fatigue [Unknown]
  - Cardiac disorder [Unknown]
  - Snoring [Unknown]
  - Haemoglobin decreased [Recovered/Resolved]
  - Dyspnoea [Not Recovered/Not Resolved]

NARRATIVE: CASE EVENT DATE: 2013
